FAERS Safety Report 11326349 (Version 1)
Quarter: 2015Q3

REPORT INFORMATION
  Report Type: Spontaneous
  Country: US (occurrence: US)
  Receive Date: 20150731
  Receipt Date: 20150731
  Transmission Date: 20151125
  Serious: No
  Sender: FDA-Public Use
  Company Number: US-PFIZER INC-2015244290

PATIENT
  Sex: Female

DRUGS (1)
  1. ADVIL PM [Suspect]
     Active Substance: DIPHENHYDRAMINE CITRATE\IBUPROFEN
     Dosage: UNK, DAILY (FROM LAST 6 WEEKS)

REACTIONS (4)
  - Weight increased [Unknown]
  - Malaise [Unknown]
  - Abdominal pain upper [Unknown]
  - Abdominal distension [Unknown]
